FAERS Safety Report 16760555 (Version 2)
Quarter: 2019Q3

REPORT INFORMATION
  Report Type: Report from Study
  Country: GB (occurrence: GB)
  Receive Date: 20190830
  Receipt Date: 20190923
  Transmission Date: 20191005
  Serious: Yes (Hospitalization)
  Sender: FDA-Public Use
  Company Number: PHHY2019GB201841

PATIENT
  Age: 48 Year
  Sex: Male
  Weight: 104 kg

DRUGS (1)
  1. COSENTYX [Suspect]
     Active Substance: SECUKINUMAB
     Indication: PSORIATIC ARTHROPATHY
     Dosage: 300 MG, UNK
     Route: 058
     Dates: start: 20170518, end: 20190725

REACTIONS (7)
  - Productive cough [Recovered/Resolved]
  - Abdominal discomfort [Recovered/Resolved]
  - Ear infection [Recovered/Resolved]
  - Renal impairment [Not Recovered/Not Resolved]
  - Joint swelling [Recovered/Resolved]
  - Sleep apnoea syndrome [Unknown]
  - Psoriasis [Not Recovered/Not Resolved]

NARRATIVE: CASE EVENT DATE: 20180228
